FAERS Safety Report 23165901 (Version 5)
Quarter: 2025Q2

REPORT INFORMATION
  Report Type: Spontaneous
  Country: US (occurrence: US)
  Receive Date: 20231109
  Receipt Date: 20250627
  Transmission Date: 20250717
  Serious: No
  Sender: Unknown Manufacturer
  Company Number: US-THERATECHNOLOGIES INC.-2023-THE-TES-000448

PATIENT

DRUGS (2)
  1. EGRIFTA SV [Suspect]
     Active Substance: TESAMORELIN ACETATE
     Indication: Lipodystrophy acquired
     Dosage: 1.4 MG, QD (DAILY)
     Route: 058
     Dates: start: 2023, end: 20240301
  2. MELOXICAM [Suspect]
     Active Substance: MELOXICAM
     Indication: Product used for unknown indication
     Route: 065

REACTIONS (6)
  - Incorrect dose administered [Unknown]
  - Product dose omission issue [Recovered/Resolved]
  - Fluid retention [Recovered/Resolved]
  - Hypoaesthesia [Unknown]
  - Pain in extremity [Recovered/Resolved]
  - Drug ineffective [Unknown]

NARRATIVE: CASE EVENT DATE: 20231001
